FAERS Safety Report 18322305 (Version 1)
Quarter: 2020Q3

REPORT INFORMATION
  Report Type: Spontaneous
  Country: CN (occurrence: CN)
  Receive Date: 20200928
  Receipt Date: 20200928
  Transmission Date: 20201103
  Serious: Yes (Other)
  Sender: FDA-Public Use
  Company Number: CN-MEITHEAL PHARMACEUTICALS-2020MHL00062

PATIENT
  Age: 35 Year
  Sex: Female

DRUGS (9)
  1. DASATINIB. [Suspect]
     Active Substance: DASATINIB
     Indication: ACUTE MYELOID LEUKAEMIA
     Dosage: 140 MG, 1X/DAY (CONTINUOUSLY)
     Route: 065
  2. GRANULOCYTE COLONY?STIMULATING FACTOR [Concomitant]
     Active Substance: GRANULOCYTE COLONY-STIMULATING FACTOR NOS
     Dosage: 400 UG/DAY, (DAY 1 TO 15)
     Route: 065
  3. DAUNORUBICIN [Concomitant]
     Active Substance: DAUNORUBICIN
     Dosage: 90 MG, 1X/DAY (ON DAYS 5 AND 7)
     Route: 065
  4. DASATINIB. [Suspect]
     Active Substance: DASATINIB
     Dosage: 140 MG, 1X/DAY (CONTINUOUSLY)
     Route: 065
  5. CYTARABINE. [Suspect]
     Active Substance: CYTARABINE
     Indication: ACUTE MYELOID LEUKAEMIA
     Dosage: 200 MG, 1X/DAY (DAYS 1 TO 7)
     Route: 065
  6. HOMOHARRINGTONINE [Concomitant]
     Active Substance: OMACETAXINE MEPESUCCINATE
     Dosage: 3 MG, 1X/DAY (ON DAY 1, DAY 3, DAY 5, AND DAY 7)
     Route: 065
  7. ACLACINOMYCIN [Concomitant]
     Active Substance: ACLARUBICIN HYDROCHLORIDE
     Dosage: 20 MG, 1X/DAY (DAYS 2 TO 5)
     Route: 065
  8. CYTARABINE. [Suspect]
     Active Substance: CYTARABINE
     Dosage: 200 MG, 1X/DAY (FOR 7 DAYS)
     Route: 065
  9. CYTARABINE. [Suspect]
     Active Substance: CYTARABINE
     Dosage: 30 MG, 1X/DAY (DAYS 2 TO 15)
     Dates: start: 2019

REACTIONS (1)
  - Pancreatitis acute [Recovered/Resolved]
